FAERS Safety Report 15479027 (Version 3)
Quarter: 2018Q4

REPORT INFORMATION
  Report Type: Spontaneous
  Country: US (occurrence: US)
  Receive Date: 20181009
  Receipt Date: 20181015
  Transmission Date: 20190205
  Serious: Yes (Death)
  Sender: FDA-Public Use
  Company Number: US-PFIZER INC-2018403997

PATIENT
  Age: 50 Year
  Sex: Male

DRUGS (13)
  1. CEFEPIME HCL [Suspect]
     Active Substance: CEFEPIME HYDROCHLORIDE
     Indication: SERRATIA TEST POSITIVE
  2. ERTAPENEM. [Suspect]
     Active Substance: ERTAPENEM SODIUM
     Indication: SERRATIA TEST POSITIVE
  3. CEFEPIME HCL [Suspect]
     Active Substance: CEFEPIME HYDROCHLORIDE
     Indication: ANTIBIOTIC THERAPY
     Dosage: 2 G, 3X/DAY
     Route: 042
  4. CEFEPIME HCL [Suspect]
     Active Substance: CEFEPIME HYDROCHLORIDE
     Indication: PLEURAL EFFUSION
  5. MEROPENEM. [Suspect]
     Active Substance: MEROPENEM
     Indication: SERRATIA TEST POSITIVE
  6. LEVOFLOXACIN. [Suspect]
     Active Substance: LEVOFLOXACIN
     Indication: SERRATIA INFECTION
     Dosage: 500 MG, DAILY
  7. CEFEPIME HCL [Suspect]
     Active Substance: CEFEPIME HYDROCHLORIDE
     Indication: LUNG CONSOLIDATION
  8. ERTAPENEM. [Suspect]
     Active Substance: ERTAPENEM SODIUM
     Indication: ANTIBIOTIC THERAPY
     Dosage: 1 G, DAILY
     Route: 042
  9. ERTAPENEM. [Suspect]
     Active Substance: ERTAPENEM SODIUM
     Indication: LUNG CONSOLIDATION
  10. ERTAPENEM. [Suspect]
     Active Substance: ERTAPENEM SODIUM
     Indication: PLEURAL EFFUSION
  11. MEROPENEM. [Suspect]
     Active Substance: MEROPENEM
     Indication: PLEURAL EFFUSION
  12. MEROPENEM. [Suspect]
     Active Substance: MEROPENEM
     Indication: ANTIBIOTIC THERAPY
     Dosage: 2 G, 3X/DAY
     Route: 042
  13. MEROPENEM. [Suspect]
     Active Substance: MEROPENEM
     Indication: LUNG CONSOLIDATION

REACTIONS (2)
  - Pulmonary function test decreased [Fatal]
  - Drug ineffective [Fatal]
